FAERS Safety Report 11890723 (Version 2)
Quarter: 2016Q1

REPORT INFORMATION
  Report Type: Spontaneous
  Country: US (occurrence: US)
  Receive Date: 20160105
  Receipt Date: 20160107
  Transmission Date: 20160526
  Serious: No
  Sender: FDA-Public Use
  Company Number: US-009507513-1512USA011491

PATIENT
  Age: 23 Year
  Sex: Female

DRUGS (1)
  1. NEXPLANON [Suspect]
     Active Substance: ETONOGESTREL
     Indication: CONTRACEPTION
     Dosage: 1 DF, UNK
     Route: 059
     Dates: start: 20121221, end: 20151218

REACTIONS (2)
  - Device breakage [Recovered/Resolved]
  - Device difficult to use [Unknown]

NARRATIVE: CASE EVENT DATE: 20130506
